FAERS Safety Report 9270523 (Version 1)
Quarter: 2013Q2

REPORT INFORMATION
  Report Type: Spontaneous
  Country: IT (occurrence: IT)
  Receive Date: 20130503
  Receipt Date: 20130503
  Transmission Date: 20140414
  Serious: Yes (Other)
  Sender: FDA-Public Use
  Company Number: IT-EISAI INC-E3810-06416-SPO-IT

PATIENT
  Age: 64 Year
  Sex: Female

DRUGS (1)
  1. PARIET (RABEPRAZOLE) [Suspect]
     Indication: PRODUCT USED FOR UNKNOWN INDICATION
     Route: 048
     Dates: start: 20130203, end: 20130203

REACTIONS (3)
  - Pharyngeal oedema [Recovering/Resolving]
  - Paraesthesia oral [Recovering/Resolving]
  - Palatal oedema [Recovering/Resolving]
